FAERS Safety Report 10435875 (Version 2)
Quarter: 2014Q4

REPORT INFORMATION
  Report Type: Spontaneous
  Country: US (occurrence: None)
  Receive Date: 20140904
  Receipt Date: 20141031
  Transmission Date: 20150528
  Serious: Yes (Death)
  Sender: FDA-Public Use
  Company Number: HA14-323-AE

PATIENT
  Age: 72 Year
  Sex: Female
  Weight: 80.6 kg

DRUGS (14)
  1. NAPROXEN. [Suspect]
     Active Substance: NAPROXEN
     Indication: RHEUMATOID ARTHRITIS
     Route: 048
     Dates: start: 20140123
  2. SIMVASTATIN. [Concomitant]
     Active Substance: SIMVASTATIN
  3. ABILIFY [Concomitant]
     Active Substance: ARIPIPRAZOLE
  4. PROZAC (FLUOXETINE HCL) [Concomitant]
  5. CELECOXIB; IBUPROFEN; PLACEBO [Suspect]
     Active Substance: CELECOXIB\IBUPROFEN\PLACEBO
     Indication: OSTEOARTHRITIS
     Route: 048
     Dates: start: 20140123
  6. CELECOXIB; IBUPROFEN; PLACEBO [Suspect]
     Active Substance: CELECOXIB\IBUPROFEN\PLACEBO
     Indication: RHEUMATOID ARTHRITIS
     Route: 048
     Dates: start: 20140123
  7. WELLBUTRIN XL (BUPROPION HCL) [Concomitant]
  8. NAPROXEN. [Suspect]
     Active Substance: NAPROXEN
     Indication: OSTEOARTHRITIS
     Route: 048
     Dates: start: 20140123
  9. FLONASE [Concomitant]
     Active Substance: FLUTICASONE PROPIONATE
  10. VENTOLIN [Concomitant]
     Active Substance: ALBUTEROL SULFATE
  11. SAVELLA [Concomitant]
     Active Substance: MILNACIPRAN HYDROCHLORIDE
  12. AMLODIPINE [Concomitant]
     Active Substance: AMLODIPINE BESYLATE
  13. LISINOPRIL. [Concomitant]
     Active Substance: LISINOPRIL
  14. NEXIUM [Concomitant]
     Active Substance: ESOMEPRAZOLE MAGNESIUM

REACTIONS (1)
  - Death [None]

NARRATIVE: CASE EVENT DATE: 20140523
